FAERS Safety Report 8162540-1 (Version None)
Quarter: 2012Q1

REPORT INFORMATION
  Report Type: 
  Country: None (occurrence: None)
  Receive Date: 20120224
  Receipt Date: 20110620
  Transmission Date: 20120608
  Serious: No
  Sender: FDA-Public Use
  Company Number: US-PFIZER INC-K201100732

PATIENT
  Age: 64 Year
  Sex: Male

DRUGS (11)
  1. LEXAPRO [Suspect]
     Indication: ANXIETY
     Dosage: 5 MG, 1X/DAY
     Route: 048
     Dates: start: 20070101
  2. COQ10 [Concomitant]
     Dosage: 200 MG, UNK
  3. B50 [Concomitant]
     Dosage: UNK
  4. FOLIC ACID [Concomitant]
     Dosage: UNK
  5. NIASPAN [Concomitant]
     Indication: MYOCARDIAL INFARCTION
     Dosage: 1 G, UNK
  6. ASPIRIN [Concomitant]
     Indication: MYOCARDIAL INFARCTION
     Dosage: UNK
  7. ALTACE [Suspect]
     Indication: MYOCARDIAL INFARCTION
     Dosage: UNK
     Dates: end: 20110613
  8. BETA BLOCKING AGENTS [Concomitant]
     Indication: MYOCARDIAL INFARCTION
     Dosage: 25 MG, UNK
  9. PRILOSEC [Concomitant]
     Dosage: UNK
  10. LEXAPRO [Suspect]
     Dosage: 20 MG, 1X/DAY
     Route: 048
     Dates: start: 20090101, end: 20110526
  11. LEXAPRO [Suspect]
     Dosage: 10 MG, 1X/DAY
     Route: 048
     Dates: end: 20090101

REACTIONS (2)
  - DIZZINESS [None]
  - ANGIOEDEMA [None]
